FAERS Safety Report 8211063-X (Version None)
Quarter: 2012Q1

REPORT INFORMATION
  Report Type: 
  Country: None (occurrence: None)
  Receive Date: 20120315
  Receipt Date: 20120312
  Transmission Date: 20120608
  Serious: Yes (Other)
  Sender: FDA-Public Use
  Company Number: PHEH2012US003843

PATIENT
  Sex: Female
  Weight: 68 kg

DRUGS (3)
  1. CALCIUM [Concomitant]
     Dosage: 1200 MG, UNK
     Route: 048
  2. VITAMIN D [Concomitant]
     Dosage: 2000 U, UNK
  3. RECLAST [Suspect]
     Indication: OSTEOPOROSIS
     Dosage: 5 MG, YEARLY
     Route: 042
     Dates: start: 20120124

REACTIONS (4)
  - INFLUENZA LIKE ILLNESS [None]
  - BLISTER [None]
  - PAIN [None]
  - EYE DISCHARGE [None]
